FAERS Safety Report 17688851 (Version 1)
Quarter: 2020Q2

REPORT INFORMATION
  Report Type: Spontaneous
  Country: US (occurrence: US)
  Receive Date: 20200417
  Receipt Date: 20200417
  Transmission Date: 20200714
  Serious: No
  Sender: FDA-Public Use
  Company Number: None

PATIENT
  Age: 77 Year
  Sex: Female
  Weight: 143 kg

DRUGS (1)
  1. RIVAROXABAN (RIVAROXABAN 20MG TAB) [Suspect]
     Active Substance: RIVAROXABAN
     Route: 048
     Dates: start: 20170328, end: 20180413

REACTIONS (1)
  - Haemorrhage [None]

NARRATIVE: CASE EVENT DATE: 20180413
